FAERS Safety Report 23298678 (Version 1)
Quarter: 2023Q4

REPORT INFORMATION
  Report Type: Other
  Country: GB (occurrence: GB)
  Receive Date: 20231214
  Receipt Date: 20231214
  Transmission Date: 20240109
  Serious: Yes (Other)
  Sender: FDA-Public Use
  Company Number: GB-MACLEODS PHARMA EU LTD-MAC2023044764

PATIENT

DRUGS (12)
  1. VALSARTAN [Suspect]
     Active Substance: VALSARTAN
     Indication: Ill-defined disorder
     Dosage: 40 MILLIGRAM, CAPSULE
     Route: 065
     Dates: start: 20231130
  2. VALSARTAN [Suspect]
     Active Substance: VALSARTAN
     Dosage: UNK UNK, QD
     Route: 065
     Dates: start: 20220609, end: 20231130
  3. AMLODIPINE [Concomitant]
     Active Substance: AMLODIPINE BESYLATE
     Indication: Ill-defined disorder
     Dosage: 1 DOSAGE FORM, QD
     Route: 065
     Dates: start: 20220609
  4. ASPIRIN [Concomitant]
     Active Substance: ASPIRIN
     Indication: Ill-defined disorder
     Dosage: 1 DOSAGE FORM, QD, WITH OR AFTER FOOD
     Route: 065
     Dates: start: 20220609
  5. ATORVASTATIN [Concomitant]
     Active Substance: ATORVASTATIN
     Indication: Ill-defined disorder
     Dosage: 1 DOSAGE FORM, QD
     Route: 065
     Dates: start: 20220609
  6. BISOPROLOL [Concomitant]
     Active Substance: BISOPROLOL\BISOPROLOL FUMARATE
     Indication: Ill-defined disorder
     Dosage: 1 DOSAGE FORM, QD
     Route: 065
     Dates: start: 20231122
  7. CANAGLIFLOZIN [Concomitant]
     Active Substance: CANAGLIFLOZIN
     Indication: Ill-defined disorder
     Dosage: 1 DOSAGE FORM, QD
     Route: 065
     Dates: start: 20230719
  8. COCODAMOL [Concomitant]
     Active Substance: ACETAMINOPHEN\CODEINE PHOSPHATE
     Indication: Ill-defined disorder
     Dosage: UNK UNK, QID,TAKE ONE OR TWO TABLETS FOUR TIMES A DAY WHEN R...
     Route: 065
     Dates: start: 20231107, end: 20231117
  9. DICLOFENAC DIETHYLAMINE [Concomitant]
     Active Substance: DICLOFENAC DIETHYLAMINE
     Indication: Ill-defined disorder
     Dosage: UNK UNK, TID, APPLY THREE TIMES A DAY TO THE AFFECTED AREA(S)...
     Route: 065
     Dates: start: 20231107
  10. GLIMEPIRIDE [Concomitant]
     Active Substance: GLIMEPIRIDE
     Indication: Ill-defined disorder
     Dosage: 1 DOSAGE FORM, QD
     Route: 065
     Dates: start: 20230802
  11. LANSOPRAZOLE [Concomitant]
     Active Substance: LANSOPRAZOLE
     Indication: Ill-defined disorder
     Dosage: 1 DOSAGE FORM, QD
     Route: 065
     Dates: start: 20220609
  12. METFORMIN [Concomitant]
     Active Substance: METFORMIN HYDROCHLORIDE
     Indication: Ill-defined disorder
     Dosage: 1 DOSAGE FORM, QD
     Route: 065
     Dates: start: 20220719

REACTIONS (1)
  - Hyperkalaemia [Recovered/Resolved]

NARRATIVE: CASE EVENT DATE: 20231130
